FAERS Safety Report 8489375-4 (Version None)
Quarter: 2012Q2

REPORT INFORMATION
  Report Type: 
  Country: None (occurrence: None)
  Receive Date: 20120628
  Receipt Date: 20120628
  Transmission Date: 20120825
  Serious: Yes (Hospitalization)
  Sender: FDA-Public Use
  Company Number: None

PATIENT
  Age: 66 Year
  Sex: Male
  Weight: 72.5755 kg

DRUGS (2)
  1. CEFEPIME 1 GM MERCK [Suspect]
     Indication: PYREXIA
     Dosage: 1 GM Q12H IV DRIP
     Route: 041
     Dates: start: 20120606, end: 20120607
  2. CEFEPIME [Concomitant]

REACTIONS (6)
  - BODY TEMPERATURE INCREASED [None]
  - HOSTILITY [None]
  - TREMOR [None]
  - BLOOD CREATININE INCREASED [None]
  - RESTLESSNESS [None]
  - CONFUSIONAL STATE [None]
